FAERS Safety Report 17461163 (Version 1)
Quarter: 2020Q1

REPORT INFORMATION
  Report Type: Spontaneous
  Country: US (occurrence: US)
  Receive Date: 20200226
  Receipt Date: 20200226
  Transmission Date: 20200409
  Serious: Yes (Hospitalization)
  Sender: FDA-Public Use
  Company Number: None

PATIENT
  Age: 49 Year
  Sex: Male

DRUGS (1)
  1. NAPROXEN. [Suspect]
     Active Substance: NAPROXEN
     Route: 048
     Dates: start: 20160201, end: 20200124

REACTIONS (4)
  - Abdominal pain [None]
  - Gastrointestinal haemorrhage [None]
  - Melaena [None]
  - Abdominal distension [None]

NARRATIVE: CASE EVENT DATE: 20200124
